FAERS Safety Report 21622434 (Version 1)
Quarter: 2022Q4

REPORT INFORMATION
  Report Type: Spontaneous
  Country: US (occurrence: None)
  Receive Date: 20221119
  Receipt Date: 20221119
  Transmission Date: 20230112
  Serious: Yes (Other)
  Sender: FDA-Public Use
  Company Number: None

PATIENT
  Age: 41 Year
  Sex: Male
  Weight: 63 kg

DRUGS (3)
  1. FINASTERIDE [Suspect]
     Active Substance: FINASTERIDE
     Indication: Prostatomegaly
     Dosage: OTHER QUANTITY : 1 TABLET(S);?
     Route: 048
     Dates: start: 20211001, end: 20221017
  2. INSULIN NOS [Concomitant]
     Active Substance: INSULIN NOS
  3. VITAMIN D [Concomitant]
     Active Substance: VITAMIN D NOS

REACTIONS (5)
  - Penile curvature [None]
  - Peyronie^s disease [None]
  - Libido decreased [None]
  - Semen volume decreased [None]
  - Erectile dysfunction [None]

NARRATIVE: CASE EVENT DATE: 20220926
